FAERS Safety Report 23640657 (Version 1)
Quarter: 2024Q1

REPORT INFORMATION
  Report Type: Spontaneous
  Country: US (occurrence: US)
  Receive Date: 20240318
  Receipt Date: 20240318
  Transmission Date: 20240410
  Serious: Yes (Other)
  Sender: FDA-Public Use
  Company Number: US-JNJFOC-20240320992

PATIENT
  Age: 69 Year
  Sex: Male

DRUGS (3)
  1. BALVERSA [Suspect]
     Active Substance: ERDAFITINIB
     Indication: Metastatic carcinoma of the bladder
     Route: 065
  2. BALVERSA [Suspect]
     Active Substance: ERDAFITINIB
     Route: 065
  3. BALVERSA [Suspect]
     Active Substance: ERDAFITINIB
     Dosage: ERDAFITINIB DOSE REDUCTION TO 4 MG
     Route: 065

REACTIONS (4)
  - Cataract [Recovered/Resolved]
  - Retinopathy [Recovering/Resolving]
  - Blood phosphorus increased [Unknown]
  - Adverse drug reaction [Unknown]
